FAERS Safety Report 21789681 (Version 5)
Quarter: 2023Q1

REPORT INFORMATION
  Report Type: Report from Study
  Country: US (occurrence: US)
  Receive Date: 20221228
  Receipt Date: 20230304
  Transmission Date: 20230417
  Serious: Yes (Hospitalization)
  Sender: FDA-Public Use
  Company Number: US-002147023-NVSC2022US300100

PATIENT
  Sex: Male

DRUGS (1)
  1. ENTRESTO [Suspect]
     Active Substance: SACUBITRIL\VALSARTAN
     Indication: Product used for unknown indication
     Dosage: UNK
     Route: 065

REACTIONS (6)
  - Post procedural infection [Recovered/Resolved]
  - Heart rate irregular [Unknown]
  - Upper limb fracture [Unknown]
  - Arthropathy [Unknown]
  - Mobility decreased [Unknown]
  - Product use issue [Unknown]
